FAERS Safety Report 6615582-9 (Version None)
Quarter: 2010Q1

REPORT INFORMATION
  Report Type: 
  Country: None (occurrence: None)
  Receive Date: 20100301
  Receipt Date: 20100218
  Transmission Date: 20100710
  Serious: Yes (Disabling)
  Sender: FDA-Public Use
  Company Number: 2010SP010518

PATIENT
  Age: 50 Year
  Sex: Male

DRUGS (2)
  1. TEMODAL [Suspect]
     Indication: ASTROCYTOMA
     Dosage: 75 MG/M2; PO
     Route: 048
     Dates: start: 20100101
  2. BETAMETHASONE [Concomitant]

REACTIONS (3)
  - EPILEPSY [None]
  - HAEMORRHAGIC CEREBRAL INFARCTION [None]
  - VENOUS OCCLUSION [None]
